FAERS Safety Report 23066908 (Version 3)
Quarter: 2024Q2

REPORT INFORMATION
  Report Type: Report from Study
  Country: US (occurrence: US)
  Receive Date: 20231016
  Receipt Date: 20240524
  Transmission Date: 20240716
  Serious: Yes (Other)
  Sender: FDA-Public Use
  Company Number: US-002147023-NVSC2023US219342

PATIENT
  Age: 36 Year
  Sex: Female

DRUGS (1)
  1. KESIMPTA [Suspect]
     Active Substance: OFATUMUMAB
     Indication: Relapsing multiple sclerosis
     Dosage: 20 MG, QMO
     Route: 058
     Dates: start: 20230908

REACTIONS (9)
  - Bronchitis bacterial [Unknown]
  - Pyrexia [Unknown]
  - Inappropriate schedule of product administration [Unknown]
  - Headache [Unknown]
  - Fatigue [Unknown]
  - Brain fog [Unknown]
  - Hypoaesthesia [Unknown]
  - Limb discomfort [Unknown]
  - Stress [Unknown]

NARRATIVE: CASE EVENT DATE: 20230929
